FAERS Safety Report 8837717 (Version 2)
Quarter: 2013Q1

REPORT INFORMATION
  Report Type: Report from Study
  Country: BR (occurrence: BR)
  Receive Date: 20121012
  Receipt Date: 20130214
  Transmission Date: 20140127
  Serious: Yes (Hospitalization)
  Sender: FDA-Public Use
  Company Number: BR-ABBOTT-12P-020-0992132-00

PATIENT
  Age: 59 Year
  Sex: Female
  Weight: 86 kg

DRUGS (9)
  1. HUMIRA [Suspect]
     Indication: RHEUMATOID ARTHRITIS
     Route: 058
     Dates: start: 201211, end: 201212
  2. PREDNISONE [Concomitant]
     Indication: ARTHRITIS
     Route: 048
     Dates: start: 200910
  3. AMITRIPTYLINE [Concomitant]
     Indication: INSOMNIA
     Route: 048
     Dates: start: 200910
  4. CAPTOPRIL [Concomitant]
     Indication: BLOOD PRESSURE
     Route: 048
  5. OMEPRAZOLE [Concomitant]
     Indication: GASTRIC DISORDER
     Route: 048
     Dates: start: 201110
  6. FLUOXETIN [Concomitant]
     Indication: DEPRESSION
     Route: 048
     Dates: start: 200710
  7. MAXSULIDE [Concomitant]
     Indication: PAIN
     Route: 048
     Dates: start: 201301
  8. TERBINAFINE [Concomitant]
     Indication: HYPERSENSITIVITY
     Dates: start: 201301
  9. LEFLUNOMIDE [Concomitant]
     Indication: RHEUMATOID ARTHRITIS
     Route: 048

REACTIONS (10)
  - Pyrexia [Recovered/Resolved]
  - Cardiomegaly [Not Recovered/Not Resolved]
  - Pharyngitis [Recovering/Resolving]
  - Hypertension [Recovered/Resolved]
  - Pyrexia [Recovered/Resolved]
  - Drug ineffective [Recovered/Resolved]
  - Malaise [Recovered/Resolved]
  - Abdominal distension [Recovered/Resolved]
  - Swelling [Recovered/Resolved]
  - Pruritus [Recovered/Resolved]
